FAERS Safety Report 4368404-3 (Version None)
Quarter: 2004Q2

REPORT INFORMATION
  Report Type: 
  Country: None (occurrence: None)
  Receive Date: 20040602
  Receipt Date: 20040524
  Transmission Date: 20050107
  Serious: Yes (Life-Threatening)
  Sender: FDA-Public Use
  Company Number: GB-GLAXOSMITHKLINE-B0333706A

PATIENT
  Age: 22 Year
  Sex: Female
  Weight: 5 kg

DRUGS (1)
  1. CEFUROXIME SODIUM [Suspect]
     Indication: URINARY TRACT INFECTION
     Dosage: 750MG PER DAY
     Route: 042
     Dates: start: 20040509, end: 20040511

REACTIONS (4)
  - BONE MARROW DEPRESSION [None]
  - HAEMOGLOBIN DECREASED [None]
  - PLATELET COUNT DECREASED [None]
  - WHITE BLOOD CELL COUNT DECREASED [None]
